FAERS Safety Report 4322487-5 (Version None)
Quarter: 2004Q1

REPORT INFORMATION
  Report Type: 
  Country: None (occurrence: None)
  Receive Date: 20040324
  Receipt Date: 20040312
  Transmission Date: 20041129
  Serious: Yes (Hospitalization)
  Sender: FDA-Public Use
  Company Number: DE-BRISTOL-MYERS SQUIBB COMPANY-12534129

PATIENT
  Age: 73 Year
  Sex: Male

DRUGS (14)
  1. APROVEL TABS 300 MG [Suspect]
     Indication: HYPERTENSION
     Route: 048
     Dates: start: 20030730, end: 20030101
  2. ACE INHIBITOR [Concomitant]
     Indication: HYPERTENSION
     Route: 048
  3. BETA BLOCKER [Concomitant]
     Indication: HYPERTENSION
     Route: 048
  4. DIURETIC [Concomitant]
     Indication: HYPERTENSION
     Route: 048
  5. GLUCOBAY [Concomitant]
     Indication: DIABETES MELLITUS
     Route: 048
  6. NOVONORM [Concomitant]
     Indication: DIABETES MELLITUS
     Route: 048
  7. MARCUMAR [Concomitant]
     Indication: ATRIAL FIBRILLATION
     Route: 048
  8. SYMBICORT [Concomitant]
     Indication: CHRONIC OBSTRUCTIVE AIRWAYS DISEASE
     Route: 055
  9. AARANE [Concomitant]
     Indication: CHRONIC OBSTRUCTIVE AIRWAYS DISEASE
     Route: 055
  10. CORDAREX [Concomitant]
     Indication: ARRHYTHMIA
     Route: 048
  11. BELOC-ZOK [Concomitant]
     Route: 048
  12. SPIRIVA [Concomitant]
     Route: 055
  13. FORADIL [Concomitant]
     Route: 055
  14. PULMICORT [Concomitant]
     Route: 055

REACTIONS (2)
  - BRONCHOSPASM [None]
  - CARDIAC FAILURE [None]
